FAERS Safety Report 10400737 (Version 1)
Quarter: 2014Q1

REPORT INFORMATION
  Report Type: Spontaneous
  Country: US (occurrence: None)
  Receive Date: 20130815
  Receipt Date: 20130815
  Transmission Date: 20141002
  Serious: Yes (Other)
  Sender: FDA-Public Use
  Company Number: ADR-2012-02140

PATIENT
  Sex: Female

DRUGS (2)
  1. COMPOUNDED BACLOFEN # BACLOFEN (3000 MCG/ML) [Suspect]
     Indication: MUSCLE SPASTICITY
     Dosage: 310 MCG/DAY
  2. MORPHINE SULFATE (19.6 MCG/DAY, 8 MG/DAY) [Concomitant]

REACTIONS (1)
  - Weight decreased [None]
